FAERS Safety Report 7531565-9 (Version None)
Quarter: 2011Q2

REPORT INFORMATION
  Report Type: 
  Country: None (occurrence: None)
  Receive Date: 20110601
  Receipt Date: 20110516
  Transmission Date: 20111010
  Serious: Yes (Death)
  Sender: FDA-Public Use
  Company Number: DSJ-2011-08684

PATIENT
  Age: 52 Year
  Sex: Male
  Weight: 70.5 kg

DRUGS (14)
  1. LOXONIN (LOXOPROFEN SODIUM) (TABLET) (LOXOPROFEN SODIUM) [Suspect]
     Indication: HEADACHE
     Dosage: 60 MG (20 MG, 3 IN 1 D) PER ORAL; 40 MF (20 MF, 2 IN 1 D), PER ORAL
     Route: 048
     Dates: end: 20110121
  2. LOXONIN (LOXOPROFEN SODIUM) (TABLET) (LOXOPROFEN SODIUM) [Suspect]
     Indication: PAIN
     Dosage: 60 MG (20 MG, 3 IN 1 D) PER ORAL; 40 MF (20 MF, 2 IN 1 D), PER ORAL
     Route: 048
     Dates: end: 20110121
  3. LOXONIN (LOXOPROFEN SODIUM) (TABLET) (LOXOPROFEN SODIUM) [Suspect]
     Indication: INFECTION PROPHYLAXIS
     Dosage: 60 MG (20 MG, 3 IN 1 D) PER ORAL; 40 MF (20 MF, 2 IN 1 D), PER ORAL
     Route: 048
     Dates: end: 20110121
  4. LOXONIN (LOXOPROFEN SODIUM) (TABLET) (LOXOPROFEN SODIUM) [Suspect]
     Indication: HEADACHE
     Dosage: 60 MG (20 MG, 3 IN 1 D) PER ORAL; 40 MF (20 MF, 2 IN 1 D), PER ORAL
     Route: 048
     Dates: start: 20110427
  5. LOXONIN (LOXOPROFEN SODIUM) (TABLET) (LOXOPROFEN SODIUM) [Suspect]
     Indication: PAIN
     Dosage: 60 MG (20 MG, 3 IN 1 D) PER ORAL; 40 MF (20 MF, 2 IN 1 D), PER ORAL
     Route: 048
     Dates: start: 20110427
  6. LOXONIN (LOXOPROFEN SODIUM) (TABLET) (LOXOPROFEN SODIUM) [Suspect]
     Indication: INFECTION PROPHYLAXIS
     Dosage: 60 MG (20 MG, 3 IN 1 D) PER ORAL; 40 MF (20 MF, 2 IN 1 D), PER ORAL
     Route: 048
     Dates: start: 20110427
  7. NORVASC [Suspect]
     Indication: HYPERTENSION
     Dosage: UNKNOWN; 2.5 MG (2.5 MG, 1 IN 1 D),
     Dates: start: 20101126
  8. FLOMOX (CEFCAPENE PIVOXIL HYDROCHLORIDE) (TABLET) (CEFCAPENE PIVOXIL H [Suspect]
     Indication: INFECTION PROPHYLAXIS
     Dosage: 40 MG (20 MG, 2 IN 1 D), ORAL
     Route: 048
     Dates: start: 20110421
  9. AXITINIB [Suspect]
     Indication: METASTATIC RENAL CELL CARCINOMA
     Dosage: 10 MG (5 MG, 2 IN 1 D), PER ORAL; 6 MG (3 MG, 2 IN 1 D), PER ORAL
     Route: 048
     Dates: start: 20101126, end: 20110110
  10. AXITINIB [Suspect]
     Indication: METASTATIC RENAL CELL CARCINOMA
     Dosage: 10 MG (5 MG, 2 IN 1 D), PER ORAL; 6 MG (3 MG, 2 IN 1 D), PER ORAL
     Route: 048
     Dates: start: 20110114, end: 20110425
  11. LEVOTHYROXINE SODIUM [Suspect]
     Indication: THYROID FUNCTION TEST ABNORMAL
     Dosage: 50 MCG (50 MCG, 1 IN 1 D), PER ORAL
     Route: 048
  12. OLMESARTAN MEDOXOMIL [Suspect]
     Indication: BLOOD PRESSURE INCREASED
     Dosage: PER ORAL; 20 MG, (20 MG, 1 IN 1 D), PER ORAL; 40 MG (20 MG, 2 IN 1 D), PER ORAL
     Route: 048
     Dates: start: 20101126
  13. OLMESARTAN MEDOXOMIL [Suspect]
     Indication: BLOOD PRESSURE INCREASED
     Dosage: PER ORAL; 20 MG, (20 MG, 1 IN 1 D), PER ORAL; 40 MG (20 MG, 2 IN 1 D), PER ORAL
     Route: 048
     Dates: start: 20110107
  14. OLMESARTAN MEDOXOMIL [Suspect]
     Indication: BLOOD PRESSURE INCREASED
     Dosage: PER ORAL; 20 MG, (20 MG, 1 IN 1 D), PER ORAL; 40 MG (20 MG, 2 IN 1 D), PER ORAL
     Route: 048
     Dates: start: 20101207, end: 20110106

REACTIONS (9)
  - LIPOMA [None]
  - THROAT TIGHTNESS [None]
  - HEADACHE [None]
  - CYANOSIS [None]
  - ISCHAEMIA [None]
  - CARDIO-RESPIRATORY ARREST [None]
  - VENTRICULAR TACHYCARDIA [None]
  - CIRCULATORY COLLAPSE [None]
  - HAEMOCONCENTRATION [None]
